FAERS Safety Report 17843998 (Version 1)
Quarter: 2020Q2

REPORT INFORMATION
  Report Type: Spontaneous
  Country: FR (occurrence: FR)
  Receive Date: 20200601
  Receipt Date: 20200601
  Transmission Date: 20200714
  Serious: Yes (Hospitalization)
  Sender: FDA-Public Use
  Company Number: FR-SUN PHARMACEUTICAL INDUSTRIES LTD-2020RR-248781

PATIENT
  Age: 61 Year
  Sex: Female

DRUGS (1)
  1. OLANZAPINE. [Suspect]
     Active Substance: OLANZAPINE
     Indication: BIPOLAR DISORDER
     Dosage: 15 MILLIGRAM, DAILY
     Route: 048
     Dates: start: 20200316, end: 20200331

REACTIONS (1)
  - Hepatitis cholestatic [Not Recovered/Not Resolved]

NARRATIVE: CASE EVENT DATE: 20200331
